FAERS Safety Report 9584112 (Version 1)
Quarter: 2013Q4

REPORT INFORMATION
  Report Type: Spontaneous
  Country: US (occurrence: US)
  Receive Date: 20131002
  Receipt Date: 20131002
  Transmission Date: 20140711
  Serious: No
  Sender: FDA-Public Use
  Company Number: US-AMGEN-USASP2013051696

PATIENT
  Age: 56 Year
  Sex: Female

DRUGS (6)
  1. ENBREL [Suspect]
     Indication: PRODUCT USED FOR UNKNOWN INDICATION
     Dosage: 50 MG, ONCE A WEEK
     Route: 058
  2. PREDNISONE [Concomitant]
     Dosage: 1 MG, UNK
  3. MULTIVITAMINS, PLAIN [Concomitant]
     Dosage: UNK
  4. OMEGA 3                            /01334101/ [Concomitant]
     Dosage: 1000 MG, UNK
  5. VITAMIN D                          /00107901/ [Concomitant]
     Dosage: 1000 UNIT, UNK
  6. BENADRYL                           /00673901/ [Concomitant]
     Dosage: 25 MG, UNK

REACTIONS (2)
  - Visual impairment [Unknown]
  - Nervousness [Unknown]
